FAERS Safety Report 4788426-8 (Version None)
Quarter: 2005Q4

REPORT INFORMATION
  Report Type: 
  Country: None (occurrence: None)
  Receive Date: 20051005
  Receipt Date: 20050822
  Transmission Date: 20060501
  Serious: Yes (Death, Other)
  Sender: FDA-Public Use
  Company Number: 200516300US

PATIENT
  Age: 58 Year
  Sex: Male

DRUGS (3)
  1. LANTUS [Suspect]
     Indication: DIABETES MELLITUS
     Dosage: DOSE: UNKNOWN
  2. INSULINS NOS [Concomitant]
     Dosage: DOSE: UNKNOWN
  3. UNKNOWN DRUG [Concomitant]

REACTIONS (3)
  - CARDIAC DISORDER [None]
  - DIALYSIS [None]
  - MYOCARDIAL INFARCTION [None]
